FAERS Safety Report 6517713-8 (Version None)
Quarter: 2009Q4

REPORT INFORMATION
  Report Type: 
  Country: None (occurrence: None)
  Receive Date: 20091218
  Receipt Date: 20091216
  Transmission Date: 20100525
  Serious: Yes (Hospitalization)
  Sender: FDA-Public Use
  Company Number: 2009SP041782

PATIENT
  Age: 35 Year
  Sex: Male

DRUGS (4)
  1. VIRAFERONPEG [Suspect]
     Indication: HEPATITIS C
     Dosage: 120 MG; QW; SC
     Route: 058
     Dates: start: 20090501, end: 20090921
  2. REBETOL [Suspect]
     Indication: HEPATITIS C
     Dosage: 200 MG; QD; PO
     Route: 048
     Dates: start: 20090501, end: 20090921
  3. DIANTALVIC [Concomitant]
  4. LEXOMIL [Concomitant]

REACTIONS (3)
  - ASCITES [None]
  - GENERALISED OEDEMA [None]
  - NEPHROTIC SYNDROME [None]
